FAERS Safety Report 10163695 (Version 3)
Quarter: 2014Q3

REPORT INFORMATION
  Report Type: Spontaneous
  Country: US (occurrence: US)
  Receive Date: 20140509
  Receipt Date: 20140721
  Transmission Date: 20150326
  Serious: Yes (Other)
  Sender: FDA-Public Use
  Company Number: US-GILEAD-2014-0101889

PATIENT
  Age: 59 Year
  Sex: Male
  Weight: 99.77 kg

DRUGS (6)
  1. SOVALDI [Suspect]
     Active Substance: SOFOSBUVIR
     Indication: HEPATITIS C
     Dosage: 400 MG, QD
     Route: 048
     Dates: start: 20140214, end: 20140509
  2. ACETAMINOPHEN. [Concomitant]
     Active Substance: ACETAMINOPHEN
     Indication: BACK PAIN
     Dosage: 325 MG, PRN
     Route: 048
     Dates: start: 20131223
  3. RIBAVIRIN. [Suspect]
     Active Substance: RIBAVIRIN
     Indication: HEPATITIS C
     Dosage: 1200 MG, QD
     Route: 048
     Dates: start: 20140214, end: 20140509
  4. WELLBUTRIN [Concomitant]
     Active Substance: BUPROPION HYDROCHLORIDE
     Indication: DEPRESSION
     Dosage: 200 MG, QD
     Route: 048
     Dates: start: 2010
  5. OMEPRAZOL                          /00661201/ [Concomitant]
     Active Substance: OMEPRAZOLE
     Indication: GASTROOESOPHAGEAL REFLUX DISEASE
     Dosage: 20 MG, QD
     Route: 048
     Dates: start: 2011
  6. PEGYLATED INTERFERON ALPHA NOS [Suspect]
     Active Substance: PEGINTERFERON ALFA-2A OR PEGINTERFERON ALFA-2B
     Indication: HEPATITIS C
     Dosage: 150 ?G, Q1WK
     Route: 058
     Dates: start: 20140214, end: 20140509

REACTIONS (6)
  - Hypoglycaemia [Recovered/Resolved]
  - Insomnia [Unknown]
  - Rash [Unknown]
  - Fatigue [Recovered/Resolved]
  - Neutropenia [Recovered/Resolved]
  - Back pain [Recovered/Resolved]

NARRATIVE: CASE EVENT DATE: 20140221
